FAERS Safety Report 8222573-3 (Version None)
Quarter: 2012Q1

REPORT INFORMATION
  Report Type: 
  Country: None (occurrence: None)
  Receive Date: 20120320
  Receipt Date: 20120309
  Transmission Date: 20120608
  Serious: Yes (Hospitalization)
  Sender: FDA-Public Use
  Company Number: IT-GENZYME-POMP-1001982

PATIENT
  Sex: Male

DRUGS (7)
  1. DIURETICS [Concomitant]
     Indication: DISEASE PROGRESSION
     Dosage: UNK UNK, UNK
     Route: 065
  2. HYDROCORTISONE [Concomitant]
     Indication: PREMEDICATION
     Dosage: UNK UNK, UNK
     Route: 065
  3. MYOZYME [Suspect]
     Indication: GLYCOGEN STORAGE DISEASE TYPE II
     Dosage: 20 MG/KG, QW
     Route: 042
     Dates: start: 20120118
  4. PROPRANOLOL [Concomitant]
     Indication: DISEASE PROGRESSION
     Dosage: 0.5 MG/KG, UNK
     Route: 065
  5. CHLORPHENIRAMINE MALEATE [Concomitant]
     Indication: PREMEDICATION
     Dosage: UNK UNK, UNK
     Route: 065
  6. MYOZYME [Suspect]
     Dosage: 13.5 MG/KG, Q2W
     Route: 042
     Dates: start: 20111205, end: 20120118
  7. MYOZYME [Suspect]
     Dosage: 13.5 MG/KG, UNK
     Route: 042
     Dates: start: 20110709, end: 20111205

REACTIONS (3)
  - HYPERTROPHIC CARDIOMYOPATHY [None]
  - DISEASE PROGRESSION [None]
  - DRUG INEFFECTIVE [None]
